FAERS Safety Report 5389011-X (Version None)
Quarter: 2007Q3

REPORT INFORMATION
  Report Type: 
  Country: None (occurrence: None)
  Receive Date: 20070717
  Receipt Date: 20070710
  Transmission Date: 20080115
  Serious: Yes (Hospitalization)
  Sender: FDA-Public Use
  Company Number: PHNR2007AU01358

PATIENT
  Sex: Male

DRUGS (1)
  1. VOLTAREN [Suspect]

REACTIONS (2)
  - DRUG HYPERSENSITIVITY [None]
  - HYPERSENSITIVITY [None]
